FAERS Safety Report 10614022 (Version 4)
Quarter: 2015Q1

REPORT INFORMATION
  Report Type: Spontaneous
  Country: US (occurrence: US)
  Receive Date: 20141128
  Receipt Date: 20150205
  Transmission Date: 20150720
  Serious: No
  Sender: FDA-Public Use
  Company Number: US-GLAXOSMITHKLINE-A1076941A

PATIENT

DRUGS (6)
  1. LYRICA [Concomitant]
     Active Substance: PREGABALIN
  2. WELLBUTRIN XL [Suspect]
     Active Substance: BUPROPION HYDROCHLORIDE
     Indication: ANXIETY
  3. DICLOFENAC [Concomitant]
     Active Substance: DICLOFENAC
  4. WELLBUTRIN XL [Suspect]
     Active Substance: BUPROPION HYDROCHLORIDE
     Indication: DEPRESSION
     Route: 048
     Dates: start: 2011
  5. ATENOLOL. [Concomitant]
     Active Substance: ATENOLOL
  6. WELLBUTRIN SR [Suspect]
     Active Substance: BUPROPION HYDROCHLORIDE
     Indication: ANXIETY
     Dosage: 150 MG, U
     Dates: start: 2011

REACTIONS (7)
  - Feeling abnormal [Unknown]
  - Pharyngeal oedema [Recovering/Resolving]
  - Asthma [Recovering/Resolving]
  - Expired product administered [Unknown]
  - Headache [Recovered/Resolved]
  - Head discomfort [Unknown]
  - Chest discomfort [Recovering/Resolving]
